FAERS Safety Report 25813080 (Version 2)
Quarter: 2025Q4

REPORT INFORMATION
  Report Type: Spontaneous
  Country: US (occurrence: US)
  Receive Date: 20250917
  Receipt Date: 20251219
  Transmission Date: 20260117
  Serious: No
  Sender: FERRING
  Company Number: US-FERRINGPH-2025FE04749

PATIENT
  Age: 59 Year
  Sex: Female

DRUGS (3)
  1. REBYOTA [Suspect]
     Active Substance: DONOR HUMAN STOOL
     Indication: Clostridium difficile infection
     Dosage: UNK
     Route: 054
     Dates: start: 20250627
  2. MUCINEX [Suspect]
     Active Substance: GUAIFENESIN
     Indication: Respiratory disorder
     Dosage: UNK
     Route: 065
  3. SKYRIZI [Concomitant]
     Active Substance: RISANKIZUMAB-RZAA
     Dosage: UNK

REACTIONS (1)
  - Defaecation urgency [Recovered/Resolved]

NARRATIVE: CASE EVENT DATE: 20250815
